FAERS Safety Report 9690369 (Version 1)
Quarter: 2013Q4

REPORT INFORMATION
  Report Type: Report from Study
  Country: US (occurrence: US)
  Receive Date: 20131115
  Receipt Date: 20131115
  Transmission Date: 20140711
  Serious: Yes (Death)
  Sender: FDA-Public Use
  Company Number: US-ROCHE-1298667

PATIENT
  Sex: Male
  Weight: 56.16 kg

DRUGS (5)
  1. AVASTIN [Suspect]
     Indication: MALIGNANT MELANOMA
     Route: 041
  2. AVASTIN [Suspect]
     Indication: METASTASES TO LUNG
     Dosage: 02/JUL/2010
     Route: 041
     Dates: start: 20100528
  3. NORMAL SALINE [Concomitant]
     Dosage: 02/JUL/2010
     Route: 042
     Dates: start: 20100528
  4. TEMSIROLIMUS [Concomitant]
     Route: 041
  5. TEMSIROLIMUS [Concomitant]
     Dosage: 28/MAY/2010, 02/JUL/2010,
     Route: 041

REACTIONS (1)
  - Death [Fatal]
